FAERS Safety Report 6800653-4 (Version None)
Quarter: 2010Q2

REPORT INFORMATION
  Report Type: 
  Country: None (occurrence: None)
  Receive Date: 20100625
  Receipt Date: 20100625
  Transmission Date: 20101027
  Serious: Yes (Other)
  Sender: FDA-Public Use
  Company Number: None

PATIENT
  Age: 37 Year
  Sex: Female
  Weight: 60.782 kg

DRUGS (1)
  1. TYLENOL-500 [Suspect]
     Indication: MUSCULOSKELETAL PAIN
     Dosage: 1000MG TWICE A DAY ORAL
     Route: 048
     Dates: start: 20091006, end: 20100613

REACTIONS (4)
  - ASTHENIA [None]
  - DEHYDRATION [None]
  - DIARRHOEA [None]
  - PRODUCT QUALITY ISSUE [None]
